FAERS Safety Report 12865184 (Version 1)
Quarter: 2016Q4

REPORT INFORMATION
  Report Type: Spontaneous
  Country: US (occurrence: US)
  Receive Date: 20161018
  Receipt Date: 20161018
  Transmission Date: 20170207
  Serious: Yes (Hospitalization)
  Sender: FDA-Public Use
  Company Number: None

PATIENT
  Age: 69 Year
  Sex: Male

DRUGS (7)
  1. COLAE [Concomitant]
  2. ZYTIGA [Suspect]
     Active Substance: ABIRATERONE ACETATE
     Indication: PROSTATE CANCER
     Route: 048
     Dates: start: 20161005
  3. ATORVASTATIN [Concomitant]
     Active Substance: ATORVASTATIN
  4. CALC CIT [Concomitant]
  5. POTASSIUM [Concomitant]
     Active Substance: POTASSIUM
  6. PANTOPRAZ [Concomitant]
  7. SPIRONOLACT [Concomitant]

REACTIONS (5)
  - Nausea [None]
  - Feeding disorder [None]
  - Metastases to spine [None]
  - Pain [None]
  - Vomiting [None]

NARRATIVE: CASE EVENT DATE: 201609
